FAERS Safety Report 9333444 (Version 1)
Quarter: 2013Q2

REPORT INFORMATION
  Report Type: Spontaneous
  Country: IN (occurrence: IN)
  Receive Date: 20130606
  Receipt Date: 20130606
  Transmission Date: 20140414
  Serious: Yes (Other)
  Sender: FDA-Public Use
  Company Number: IN-PFIZER INC-2013169671

PATIENT
  Age: 28 Year
  Sex: Male

DRUGS (5)
  1. ZIPRASIDONE HCL [Suspect]
     Indication: SCHIZOPHRENIA, PARANOID TYPE
     Dosage: 40 MG/ DAY
  2. ZIPRASIDONE HCL [Interacting]
     Dosage: 80 MG/ DAY
  3. ZIPRASIDONE HCL [Interacting]
     Dosage: 60 MG/ DAY
  4. SERTRALINE HCL [Interacting]
     Indication: SCHIZOPHRENIA, PARANOID TYPE
     Dosage: 25 MG/ DAY
  5. CLONAZEPAM [Concomitant]
     Indication: SCHIZOPHRENIA, PARANOID TYPE
     Dosage: UNK

REACTIONS (5)
  - Drug interaction [Unknown]
  - Extrapyramidal disorder [Recovered/Resolved]
  - Dystonia [Recovered/Resolved]
  - Akathisia [Recovered/Resolved]
  - Parkinsonism [Recovered/Resolved]
